FAERS Safety Report 14035245 (Version 1)
Quarter: 2017Q4

REPORT INFORMATION
  Report Type: Report from Study
  Country: BR (occurrence: BR)
  Receive Date: 20171003
  Receipt Date: 20171003
  Transmission Date: 20180321
  Serious: Yes (Life-Threatening, Other)
  Sender: FDA-Public Use
  Company Number: PHHY2015BR155011

PATIENT
  Age: 35 Year
  Sex: Female
  Weight: 77 kg

DRUGS (2)
  1. GILENYA [Suspect]
     Active Substance: FINGOLIMOD HYDROCHLORIDE
     Dosage: 0.5 MG, QD
     Route: 048
     Dates: start: 20160309
  2. GILENYA [Suspect]
     Active Substance: FINGOLIMOD HYDROCHLORIDE
     Indication: MULTIPLE SCLEROSIS
     Dosage: 0.5 MG, QD
     Route: 048
     Dates: start: 201503, end: 20151127

REACTIONS (20)
  - Feeling abnormal [Unknown]
  - Gait inability [Unknown]
  - Nervousness [Unknown]
  - Drug ineffective [Unknown]
  - Pain in extremity [Unknown]
  - Feeling hot [Unknown]
  - Screaming [Recovering/Resolving]
  - Paraesthesia [Not Recovered/Not Resolved]
  - Heart rate increased [Recovering/Resolving]
  - Spinal pain [Unknown]
  - Crying [Unknown]
  - Depression [Unknown]
  - Liver disorder [Recovered/Resolved]
  - Multiple sclerosis relapse [Not Recovered/Not Resolved]
  - Dizziness [Unknown]
  - Pain [Not Recovered/Not Resolved]
  - Hypersensitivity [Unknown]
  - Burning sensation [Not Recovered/Not Resolved]
  - Inappropriate affect [Unknown]
  - Asthenia [Unknown]

NARRATIVE: CASE EVENT DATE: 201506
